FAERS Safety Report 8568857 (Version 3)
Quarter: 2012Q4

REPORT INFORMATION
  Report Type: 
  Country: FR (occurrence: FR)
  Receive Date: 20120518
  Receipt Date: 20120912
  Transmission Date: 20130627
  Serious: Yes (Hospitalization)
  Sender: FDA-Public Use
  Company Number: FR-PFIZER INC-2012119339

PATIENT
  Age: 72 Year
  Sex: Female

DRUGS (8)
  1. INIPOMP [Suspect]
     Dosage: UNK
     Dates: start: 20120321, end: 20120404
  2. BENDAMUSTINE [Suspect]
     Indication: LIGHT CHAIN DISEASE
     Dosage: UNK
     Dates: start: 20120307, end: 20120307
  3. DUROGESIC [Concomitant]
     Dosage: UNK
  4. RIVOTRIL [Concomitant]
     Dosage: UNK
  5. ZELITREX [Concomitant]
     Dosage: UNK
  6. HYDROCORTISONE [Concomitant]
     Dosage: UNK
  7. ATARAX [Concomitant]
     Dosage: UNK
  8. DIFFU K [Concomitant]
     Dosage: UNK

REACTIONS (1)
  - Pancytopenia [Not Recovered/Not Resolved]
